FAERS Safety Report 5877780-1 (Version None)
Quarter: 2008Q3

REPORT INFORMATION
  Report Type: 
  Country: None (occurrence: None)
  Receive Date: 20080911
  Receipt Date: 20080903
  Transmission Date: 20090109
  Serious: Yes (Other)
  Sender: FDA-Public Use
  Company Number: BR-BAYER-200817912LA

PATIENT
  Age: 61 Year
  Sex: Male
  Weight: 90 kg

DRUGS (4)
  1. AVELOX [Suspect]
     Indication: INFLUENZA
     Dosage: TOTAL DAILY DOSE: 400 MG  UNIT DOSE: 400 MG
     Route: 048
     Dates: start: 20080814, end: 20080826
  2. SINERGEN [Concomitant]
     Indication: HYPERTENSION
     Route: 048
     Dates: start: 20050101
  3. RIVOTRIL [Concomitant]
     Indication: DRUG USE FOR UNKNOWN INDICATION
     Route: 048
     Dates: start: 20050101
  4. CYMBALTA [Concomitant]
     Indication: DEPRESSION
     Route: 048
     Dates: start: 20040101

REACTIONS (2)
  - MYOCARDIAL ISCHAEMIA [None]
  - PURULENT DISCHARGE [None]
